FAERS Safety Report 5906014-4 (Version None)
Quarter: 2008Q4

REPORT INFORMATION
  Report Type: 
  Country: None (occurrence: None)
  Receive Date: 20081002
  Receipt Date: 20080925
  Transmission Date: 20090506
  Serious: Yes (Hospitalization)
  Sender: FDA-Public Use
  Company Number: US-KINGPHARMUSA00001-K200801122

PATIENT

DRUGS (9)
  1. ALTACE [Suspect]
     Dosage: 1.25 MG, QD
     Route: 048
     Dates: start: 20080801, end: 20080801
  2. LORATADINE [Concomitant]
     Dosage: 10 MG, QD
     Route: 048
  3. CYANOCOBALAMIN [Concomitant]
     Route: 030
  4. SELO-ZOK [Concomitant]
     Dosage: 25 MG, QD
  5. CIPRALEX                           /01588501/ [Concomitant]
     Dosage: 10 MG, QD
     Route: 048
  6. MICARDIS [Concomitant]
     Dosage: 80 MG, QD
     Route: 048
  7. KEFLEX                             /00145501/ [Concomitant]
     Route: 048
  8. DIURAL                             /00032601/ [Concomitant]
     Dosage: 20 MG, QD
     Route: 048
  9. ADALAT [Concomitant]
     Dosage: 30 MG, QD
     Route: 048

REACTIONS (5)
  - ANGIOEDEMA [None]
  - BRADYCARDIA [None]
  - LIP OEDEMA [None]
  - PHARYNGEAL OEDEMA [None]
  - TONGUE OEDEMA [None]
